FAERS Safety Report 24446741 (Version 1)
Quarter: 2024Q4

REPORT INFORMATION
  Report Type: Report from Study
  Country: US (occurrence: US)
  Receive Date: 20241016
  Receipt Date: 20241016
  Transmission Date: 20250114
  Serious: Yes (Hospitalization, Other)
  Sender: BAYER HEALTHCARE PHARMACEUTICALS INC.
  Company Number: US-BAYER-2024A129354

PATIENT
  Age: 48 Year
  Sex: Female
  Weight: 72.562 kg

DRUGS (23)
  1. ADEMPAS [Suspect]
     Active Substance: RIOCIGUAT
     Indication: Pulmonary arterial hypertension
     Dosage: UNK
     Route: 048
     Dates: start: 20240304
  2. ADEMPAS [Suspect]
     Active Substance: RIOCIGUAT
     Indication: Pulmonary arterial hypertension
     Dosage: 2.5 MG, TID
     Route: 048
  3. ADEMPAS [Suspect]
     Active Substance: RIOCIGUAT
     Indication: Pulmonary arterial hypertension
     Dosage: 2.5 MG, TID
     Route: 048
  4. VITAMINS [Concomitant]
     Active Substance: VITAMINS
  5. CELEBREX [Concomitant]
     Active Substance: CELECOXIB
  6. FAMOTIDINE [Concomitant]
     Active Substance: FAMOTIDINE
  7. METHOTREXATE SODIUM [Concomitant]
     Active Substance: METHOTREXATE SODIUM
  8. UPTRAVI [Concomitant]
     Active Substance: SELEXIPAG
  9. ZYRTEC [Concomitant]
     Active Substance: CETIRIZINE HYDROCHLORIDE
  10. AMBRISENTAN [Concomitant]
     Active Substance: AMBRISENTAN
  11. ENBREL [Concomitant]
     Active Substance: ETANERCEPT
  12. ACETAMINOPHEN\HYDROCODONE [Concomitant]
     Active Substance: ACETAMINOPHEN\HYDROCODONE
  13. FOLIC ACID [Concomitant]
     Active Substance: FOLIC ACID
  14. PANTOPRAZOLE SODIUM [Concomitant]
     Active Substance: PANTOPRAZOLE SODIUM
  15. POTASSIUM CHLORIDE [Concomitant]
     Active Substance: POTASSIUM CHLORIDE
  16. FLONASE ALLERGY RELIEF [Concomitant]
     Active Substance: FLUTICASONE PROPIONATE
  17. VITAMIN D3 [Concomitant]
     Active Substance: CHOLECALCIFEROL
  18. ADVIL [Concomitant]
     Active Substance: IBUPROFEN
  19. SPIRONOLACTONE [Concomitant]
     Active Substance: SPIRONOLACTONE
  20. OXYGEN [Concomitant]
     Active Substance: OXYGEN
  21. PREDNISONE [Concomitant]
     Active Substance: PREDNISONE
  22. TRAZODONE HCL [Concomitant]
     Active Substance: TRAZODONE HYDROCHLORIDE
  23. TORSEMIDE [Concomitant]
     Active Substance: TORSEMIDE

REACTIONS (4)
  - Arthritis [None]
  - Hospitalisation [None]
  - Disability [None]
  - Product dose omission issue [None]

NARRATIVE: CASE EVENT DATE: 20240801
